FAERS Safety Report 13944789 (Version 2)
Quarter: 2017Q3

REPORT INFORMATION
  Report Type: Report from Study
  Country: None (occurrence: CA)
  Receive Date: 20170907
  Receipt Date: 20170917
  Transmission Date: 20171128
  Serious: Yes (Other)
  Sender: FDA-Public Use
  Company Number: CA-ABBVIE-17K-028-2092849-00

PATIENT
  Age: 11 Year
  Sex: Male
  Weight: 35.7 kg

DRUGS (3)
  1. HUMIRA [Suspect]
     Active Substance: ADALIMUMAB
     Indication: CROHN^S DISEASE
     Route: 058
     Dates: start: 20161108, end: 201708
  2. HUMIRA [Suspect]
     Active Substance: ADALIMUMAB
     Route: 058
     Dates: start: 20170831
  3. LORAZEPAM. [Suspect]
     Active Substance: LORAZEPAM
     Indication: TOOTH EXTRACTION
     Route: 065
     Dates: start: 20170830, end: 20170830

REACTIONS (6)
  - Overdose [Unknown]
  - Tooth loss [Recovered/Resolved with Sequelae]
  - Dental operation [Recovered/Resolved]
  - Vomiting [Recovered/Resolved]
  - Somnolence [Recovered/Resolved]
  - Malaise [Recovered/Resolved]

NARRATIVE: CASE EVENT DATE: 20170830
